FAERS Safety Report 6117333-3 (Version None)
Quarter: 2009Q1

REPORT INFORMATION
  Report Type: 
  Country: None (occurrence: None)
  Receive Date: 20090314
  Receipt Date: 20090113
  Transmission Date: 20090719
  Serious: No
  Sender: FDA-Public Use
  Company Number: US-ABBOTT-09P-163-0497889-00

PATIENT
  Sex: Male

DRUGS (3)
  1. HUMIRA [Suspect]
     Indication: PSORIATIC ARTHROPATHY
     Route: 058
     Dates: start: 20060228, end: 20070307
  2. HUMIRA [Suspect]
     Dates: start: 20070307, end: 20080401
  3. HUMIRA [Suspect]
     Dates: start: 20080401

REACTIONS (2)
  - DRUG INEFFECTIVE [None]
  - PSORIASIS [None]
